FAERS Safety Report 25446478 (Version 1)
Quarter: 2025Q2

REPORT INFORMATION
  Report Type: Spontaneous
  Country: US (occurrence: US)
  Receive Date: 20250617
  Receipt Date: 20250617
  Transmission Date: 20250717
  Serious: Yes (Death)
  Sender: CSL BEHRING
  Company Number: US-BEH-2025209441

PATIENT
  Age: 69 Year
  Sex: Male
  Weight: 68.5 kg

DRUGS (1)
  1. MIRCERA [Suspect]
     Active Substance: METHOXY POLYETHYLENE GLYCOL-EPOETIN BETA
     Indication: Nephrogenic anaemia
     Route: 040
     Dates: start: 20250530, end: 20250530

REACTIONS (1)
  - Loss of consciousness [Fatal]

NARRATIVE: CASE EVENT DATE: 20250530
